FAERS Safety Report 4280477-5 (Version None)
Quarter: 2004Q1

REPORT INFORMATION
  Report Type: 
  Country: None (occurrence: None)
  Receive Date: 20040128
  Receipt Date: 20040128
  Transmission Date: 20041129
  Serious: Yes (Hospitalization)
  Sender: FDA-Public Use
  Company Number: None

PATIENT
  Age: 64 Year
  Sex: Female
  Weight: 46.4937 kg

DRUGS (2)
  1. MS CONTIN [Suspect]
     Indication: CONFUSIONAL STATE
     Dosage: 90 MG TID PO
     Route: 048
     Dates: start: 20040121, end: 20040122
  2. NEURONTIN [Suspect]
     Dosage: 300 MG Q HS PO
     Route: 048
     Dates: start: 20040121, end: 20040122

REACTIONS (3)
  - AGITATION [None]
  - CONFUSIONAL STATE [None]
  - HOSTILITY [None]
